FAERS Safety Report 8369602-4 (Version None)
Quarter: 2012Q2

REPORT INFORMATION
  Report Type: 
  Country: None (occurrence: None)
  Receive Date: 20120518
  Receipt Date: 20120515
  Transmission Date: 20120825
  Serious: Yes (Other)
  Sender: FDA-Public Use
  Company Number: PHHY2012AR008335

PATIENT
  Sex: Female

DRUGS (3)
  1. TRILEPTAL [Suspect]
     Dosage: EIGHT TABLETS OF TRILEPTAL
  2. TRILEPTAL [Suspect]
     Dosage: 300 MG, UNK
  3. TRILEPTAL [Suspect]
     Indication: EPILEPSY
     Dosage: 300 MG, UNK

REACTIONS (3)
  - SUICIDE ATTEMPT [None]
  - BIPOLAR DISORDER [None]
  - CONVULSION [None]
